FAERS Safety Report 9400719 (Version 1)
Quarter: 2013Q3

REPORT INFORMATION
  Report Type: Spontaneous
  Country: BR (occurrence: BR)
  Receive Date: 20130715
  Receipt Date: 20130715
  Transmission Date: 20140515
  Serious: Yes (Hospitalization)
  Sender: FDA-Public Use
  Company Number: BR-GLAXOSMITHKLINE-A1032802A

PATIENT
  Age: 5 Year
  Sex: Female

DRUGS (7)
  1. FLIXOTIDE [Suspect]
     Indication: ASTHMA
     Route: 055
     Dates: start: 20130415, end: 20130420
  2. RISPERIDONE [Suspect]
     Dosage: 1TAB PER DAY
     Route: 048
     Dates: start: 20130618
  3. FUROSEMIDE [Concomitant]
     Dosage: 20MG THREE TIMES PER DAY
     Route: 048
     Dates: start: 20070604
  4. ALDACTONE [Concomitant]
     Dosage: .5TAB PER DAY
     Route: 048
     Dates: start: 20070604
  5. ENALAPRIL [Concomitant]
     Dosage: 5MG TWICE PER DAY
     Route: 048
     Dates: start: 20130604
  6. SELOZOK [Concomitant]
     Dosage: 25MG ALTERNATE DAYS
     Route: 048
     Dates: start: 2010
  7. NEULEPTIL [Concomitant]
     Dosage: 9DROP PER DAY
     Route: 048
     Dates: start: 200902

REACTIONS (2)
  - Asthmatic crisis [Recovered/Resolved]
  - Condition aggravated [Unknown]
